FAERS Safety Report 8118463-7 (Version None)
Quarter: 2012Q1

REPORT INFORMATION
  Report Type: 
  Country: None (occurrence: None)
  Receive Date: 20120207
  Receipt Date: 20120131
  Transmission Date: 20120608
  Serious: Yes (Death, Hospitalization)
  Sender: FDA-Public Use
  Company Number: FR-GENZYME-FLUD-1001429

PATIENT
  Sex: Male

DRUGS (20)
  1. FLUDARA [Suspect]
     Indication: CHRONIC LYMPHOCYTIC LEUKAEMIA
     Dosage: 50 MG (40 MG/M2), QDX3 (CYCLE 1)
     Route: 042
     Dates: start: 20101101
  2. FLUDARA [Suspect]
     Dosage: 50 MG (40 MG/M2), QDX3 (CYCLE 2)
     Route: 042
  3. MABTHERA [Suspect]
     Dosage: 500 MG/M2, CYCLE 3
     Route: 042
  4. CYCLOPHOSPHAMIDE [Suspect]
     Dosage: 250 MG/M2, QDX3 (CYCLE 3)
     Route: 042
  5. CYCLOPHOSPHAMIDE [Suspect]
     Dosage: 250 MG/M2, QDX3 (CYCLE 5)
     Route: 042
  6. CYCLOPHOSPHAMIDE [Suspect]
     Dosage: 250 MG/M2, QDX3 (CYCLE 2)
     Route: 042
  7. FLUDARA [Suspect]
     Dosage: 50 MG (40 MG/M2), QDX3 (CYCLE 3)
     Route: 042
  8. FLUDARA [Suspect]
     Dosage: 50 MG (40 MG/M2), QDX3 (CYCLE 6)
     Route: 042
     Dates: end: 20110401
  9. MABTHERA [Suspect]
     Dosage: 500 MG/M2, CYCLE 6
     Route: 042
     Dates: end: 20110401
  10. CYCLOPHOSPHAMIDE [Suspect]
     Dosage: 250 MG/M2, QDX3 (CYCLE 4)
     Route: 042
  11. MABTHERA [Suspect]
     Dosage: 500 MG/M2, CYCLE 4
     Route: 042
  12. CYCLOPHOSPHAMIDE [Suspect]
     Dosage: 250 MG/M2, QDX3 (CYCLE 6)
     Route: 042
     Dates: end: 20110401
  13. CYCLOPHOSPHAMIDE [Suspect]
     Indication: CHRONIC LYMPHOCYTIC LEUKAEMIA
     Dosage: 250 MG/M2, QDX3 (CYCLE 1)
     Route: 042
     Dates: start: 20101101
  14. MABTHERA [Suspect]
     Indication: CHRONIC LYMPHOCYTIC LEUKAEMIA
     Dosage: 375 MG/M2, CYCLE 1
     Route: 042
     Dates: start: 20101101
  15. MABTHERA [Suspect]
     Dosage: 500 MG/M2, CYCLE 2
     Route: 042
  16. BACTRIM [Concomitant]
     Indication: PROPHYLAXIS
     Dosage: 3 PILLS PER WEEK
     Route: 065
     Dates: start: 20101101, end: 20110101
  17. FLUDARA [Suspect]
     Dosage: 50 MG (40 MG/M2), QDX3 (CYCLE 4)
     Route: 042
  18. FLUDARA [Suspect]
     Dosage: 50 MG (40 MG/M2), QDX3 (CYCLE 5)
     Route: 042
  19. MABTHERA [Suspect]
     Dosage: 500 MG/M2, CYCLE 5
     Route: 042
  20. VALACYCLOVIR HYDROCHLORIDE [Concomitant]
     Indication: PROPHYLAXIS
     Dosage: 500 MG, QD
     Route: 065
     Dates: start: 20101101, end: 20110101

REACTIONS (2)
  - INTERSTITIAL LUNG DISEASE [None]
  - CHRONIC LYMPHOCYTIC LEUKAEMIA RECURRENT [None]
